FAERS Safety Report 15743705 (Version 2)
Quarter: 2019Q2

REPORT INFORMATION
  Report Type: Spontaneous
  Country: US (occurrence: US)
  Receive Date: 20181220
  Receipt Date: 20190529
  Transmission Date: 20190711
  Serious: Yes (Other)
  Sender: FDA-Public Use
  Company Number: US-SUN PHARMACEUTICAL INDUSTRIES LTD-2018R1-194274

PATIENT
  Age: 33 Year
  Sex: Female

DRUGS (1)
  1. DOXYCYCLINE. [Suspect]
     Active Substance: DOXYCYCLINE
     Indication: POSTOPERATIVE WOUND INFECTION
     Dosage: UNK
     Route: 065

REACTIONS (5)
  - Neuropathy peripheral [Unknown]
  - Conjunctivitis [Recovering/Resolving]
  - Keratitis [Recovering/Resolving]
  - Toxic epidermal necrolysis [Unknown]
  - Onychomadesis [Unknown]
